FAERS Safety Report 9625920 (Version 1)
Quarter: 2013Q3

REPORT INFORMATION
  Report Type: Spontaneous
  Country: US (occurrence: None)
  Receive Date: 20130930
  Receipt Date: 20130930
  Transmission Date: 20140515
  Serious: Yes (Hospitalization, Other)
  Sender: FDA-Public Use
  Company Number: 2011030582

PATIENT
  Age: 52 Year
  Sex: Female
  Weight: 102.97 kg

DRUGS (32)
  1. HIZENTRA [Suspect]
     Indication: IMMUNODEFICIENCY COMMON VARIABLE
     Dosage: 13 G 2X/WEEK, 65 ML TWICE WEEKLY VIA FOUR SITES SC
     Route: 058
     Dates: start: 20111027
  2. HIZENTRA [Suspect]
     Indication: CHRONIC INFLAMMATORY DEMYELINATING POLYRADICULONEUROPATHY
     Dosage: 13 G 2X/WEEK, 65 ML TWICE WEEKLY VIA FOUR SITES SC
     Route: 058
     Dates: start: 20111027
  3. ACETAMINOPHEN (PARACETAMOL) [Concomitant]
  4. CYMBALTA (DULOXETINE HYDROCHLORIDE) [Concomitant]
  5. DEMEROL (PETHIDINE HYDROCHLORIDE) [Concomitant]
  6. COUMADIN (WARFARIN SODIUM) [Concomitant]
  7. LIPITOR (ATORVASTATIN CALCIUM) [Concomitant]
  8. SYNTHROID (LEVOTHYROXINE SODIUM) [Concomitant]
  9. TRICOR (FENOFIBRATE) [Concomitant]
  10. PROMETHAZINE (PROMETHAZINE) [Concomitant]
  11. BACLOFEN (BACLOFEN) [Concomitant]
  12. TOPROL XL (METOPROLOL SUCCINATE) [Concomitant]
  13. ALBUTEROL (SALBUTAMOL) [Concomitant]
  14. VITAMIN C [Concomitant]
  15. ZONEGRAN (ZONISAMIDE) [Concomitant]
  16. OXYCONTIN (OXYCODONE HYDROCHLORIDE) [Concomitant]
  17. PROAIR (SALBUTAMOL SULFATE) [Concomitant]
  18. PRILOSEC OTC (OMEPRAZOLE) [Concomitant]
  19. MULTIVITAMIN (MULTIVITAMIN) [Concomitant]
  20. DONNATAL (DONNATAL) [Concomitant]
  21. ABILIFY (ARIPIPRAZOLE) [Concomitant]
  22. DIPHENHYDRAMINE (DIPHENHYDRAMINE) [Concomitant]
  23. EPI PEN (EPINEPHRINE) [Concomitant]
  24. L-M-X (LIDOCAINE) [Concomitant]
  25. CIPRO (CIPROFLOXACIN HYDROCHLORIDE) [Concomitant]
  26. RITALIN (METHYLPHENIDATE HYDROCHLORIDE) [Concomitant]
  27. CLONAZEPAM (CLONAZEPAM) [Concomitant]
  28. CATAPRES (CLONIDINE) [Concomitant]
  29. ROCEPHIN (CEFTRIAXONE) [Concomitant]
  30. METOPROLOL TARTRATE (METOPROLOL TARTRATE) [Concomitant]
  31. TIAZAC (DILTIAZEM HYDROCHLORIDE) [Concomitant]
  32. ZYVOX (LINEZOLID) [Concomitant]

REACTIONS (3)
  - Hyperhidrosis [None]
  - Flushing [None]
  - Cerebrovascular accident [None]
